FAERS Safety Report 16204132 (Version 1)
Quarter: 2019Q2

REPORT INFORMATION
  Report Type: Spontaneous
  Country: GB (occurrence: GB)
  Receive Date: 20190416
  Receipt Date: 20190416
  Transmission Date: 20190711
  Serious: Yes (Other)
  Sender: FDA-Public Use
  Company Number: GB-PFIZER INC-2019159485

PATIENT
  Sex: Male

DRUGS (1)
  1. EFEXOR XL [Suspect]
     Active Substance: VENLAFAXINE HYDROCHLORIDE
     Dosage: 6150 MG, SINGLE (82 X 75MG)

REACTIONS (3)
  - Somnolence [Unknown]
  - Intentional overdose [Unknown]
  - Drug abuse [Unknown]
